FAERS Safety Report 14686682 (Version 1)
Quarter: 2018Q1

REPORT INFORMATION
  Report Type: Spontaneous
  Country: US (occurrence: US)
  Receive Date: 20180327
  Receipt Date: 20180327
  Transmission Date: 20180509
  Serious: No
  Sender: FDA-Public Use
  Company Number: US-TARO-2018TAR00206

PATIENT
  Age: 75 Year
  Sex: Female
  Weight: 45.81 kg

DRUGS (2)
  1. METRONIDAZOLE GEL USP, 1% [Suspect]
     Active Substance: METRONIDAZOLE
     Dosage: UNK, 1X/DAY AT NIGHT
     Route: 061
     Dates: end: 20171224
  2. METRONIDAZOLE GEL USP, 1% [Suspect]
     Active Substance: METRONIDAZOLE
     Indication: ROSACEA
     Dosage: UNK, 1X/DAY AT NIGHT
     Route: 061
     Dates: start: 20171225

REACTIONS (4)
  - Product quality issue [Not Recovered/Not Resolved]
  - Product substitution issue [Not Recovered/Not Resolved]
  - Application site exfoliation [Recovering/Resolving]
  - Application site dryness [Recovering/Resolving]

NARRATIVE: CASE EVENT DATE: 20171225
